FAERS Safety Report 12059005 (Version 1)
Quarter: 2016Q1

REPORT INFORMATION
  Report Type: Spontaneous
  Country: US (occurrence: None)
  Receive Date: 20160209
  Receipt Date: 20160209
  Transmission Date: 20160526
  Serious: No
  Sender: FDA-Public Use
  Company Number: None

PATIENT
  Age: 59 Year
  Sex: Female
  Weight: 71.67 kg

DRUGS (1)
  1. CLIMARA [Suspect]
     Active Substance: ESTRADIOL
     Indication: INVESTIGATION
     Route: 062
     Dates: start: 20150201, end: 20150724

REACTIONS (4)
  - Endometrial hyperplasia [None]
  - Haemorrhage [None]
  - Anaemia [None]
  - Menorrhagia [None]

NARRATIVE: CASE EVENT DATE: 20150622
